FAERS Safety Report 14993838 (Version 1)
Quarter: 2018Q2

REPORT INFORMATION
  Report Type: Spontaneous
  Country: AR (occurrence: AR)
  Receive Date: 20180611
  Receipt Date: 20180611
  Transmission Date: 20180711
  Serious: Yes (Other)
  Sender: FDA-Public Use
  Company Number: AR-ROCHE-2131769

PATIENT
  Age: 36 Year
  Sex: Female

DRUGS (2)
  1. HERCEPTIN [Suspect]
     Active Substance: TRASTUZUMAB
     Indication: BREAST CANCER
     Dosage: DOSE AND FREQUENCY NOT REPORTED
     Route: 042
     Dates: start: 201801
  2. HERCEPTIN [Suspect]
     Active Substance: TRASTUZUMAB
     Indication: BREAST CANCER
     Dosage: DOSE AND FREQUENCY NOT REPORTED
     Route: 058

REACTIONS (10)
  - Headache [Recovered/Resolved]
  - Arthralgia [Not Recovered/Not Resolved]
  - Pyrexia [Not Recovered/Not Resolved]
  - Influenza like illness [Recovered/Resolved]
  - Tachycardia [Recovered/Resolved]
  - Pneumonia [Not Recovered/Not Resolved]
  - Dysgeusia [Recovered/Resolved]
  - Oligomenorrhoea [Recovered/Resolved]
  - Fatigue [Not Recovered/Not Resolved]
  - Bone pain [Recovered/Resolved]

NARRATIVE: CASE EVENT DATE: 20180530
